FAERS Safety Report 8971295 (Version 2)
Quarter: 2013Q2

REPORT INFORMATION
  Report Type: Spontaneous
  Country: FR (occurrence: FR)
  Receive Date: 20121217
  Receipt Date: 20130401
  Transmission Date: 20140414
  Serious: Yes (Other)
  Sender: FDA-Public Use
  Company Number: PHHY2012FR115633

PATIENT
  Age: 43 Year
  Sex: Female

DRUGS (2)
  1. GILENYA [Suspect]
     Indication: MULTIPLE SCLEROSIS RELAPSE
     Dosage: 1 DF, QD
     Route: 048
     Dates: start: 20120420, end: 20120908
  2. GILENYA [Suspect]
     Dosage: 1 DF, QD
     Route: 048
     Dates: start: 20121203, end: 20130215

REACTIONS (3)
  - Hepatocellular injury [Recovering/Resolving]
  - Alanine aminotransferase increased [Unknown]
  - Aspartate aminotransferase increased [Unknown]
